FAERS Safety Report 6850321-8 (Version None)
Quarter: 2010Q3

REPORT INFORMATION
  Report Type: 
  Country: None (occurrence: None)
  Receive Date: 20100716
  Receipt Date: 20071015
  Transmission Date: 20110219
  Serious: No
  Sender: FDA-Public Use
  Company Number: US-PFIZER INC-2007086504

PATIENT
  Sex: Female
  Weight: 72.7 kg

DRUGS (4)
  1. CHANTIX [Suspect]
     Indication: SMOKING CESSATION THERAPY
     Dates: start: 20071007, end: 20071010
  2. ORAL CONTRACEPTIVE NOS [Concomitant]
  3. VERAPAMIL [Concomitant]
     Indication: HEADACHE
  4. NEXIUM [Concomitant]

REACTIONS (1)
  - NAUSEA [None]
